FAERS Safety Report 7468025-X (Version None)
Quarter: 2011Q2

REPORT INFORMATION
  Report Type: 
  Country: None (occurrence: None)
  Receive Date: 20110509
  Receipt Date: 20110301
  Transmission Date: 20111010
  Serious: No
  Sender: FDA-Public Use
  Company Number: US-ALEXION-A201100274

PATIENT
  Sex: Male

DRUGS (8)
  1. SOLIRIS [Suspect]
     Dosage: 900 MG, Q2W
     Route: 042
  2. CLARITIN                           /00917501/ [Concomitant]
     Dosage: UNK, QD
     Route: 048
  3. SOLIRIS [Suspect]
     Dosage: 1200 MG, Q2W
     Route: 042
     Dates: start: 20100212
  4. AMBIEN [Concomitant]
     Dosage: 5 MG, QD
     Route: 048
  5. FOLIC ACID [Concomitant]
     Dosage: 800 MCG, UNK
  6. GLUCOSAMINE /CHOND                 /03040701/ [Concomitant]
     Dosage: UNK
  7. SOLIRIS [Suspect]
     Indication: PAROXYSMAL NOCTURNAL HAEMOGLOBINURIA
     Dosage: UNK
     Route: 042
     Dates: start: 20091027
  8. WARFARIN SODIUM [Concomitant]
     Dosage: 5 MG, QD
     Route: 048

REACTIONS (9)
  - OESOPHAGEAL SPASM [None]
  - CHOLELITHIASIS [None]
  - VOMITING [None]
  - RENAL PAIN [None]
  - DYSPHAGIA [None]
  - ABDOMINAL PAIN [None]
  - DISCOMFORT [None]
  - JAUNDICE [None]
  - WEIGHT DECREASED [None]
